FAERS Safety Report 9708249 (Version 1)
Quarter: 2013Q4

REPORT INFORMATION
  Report Type: Spontaneous
  Country: US (occurrence: US)
  Receive Date: 20131125
  Receipt Date: 20131125
  Transmission Date: 20140711
  Serious: No
  Sender: FDA-Public Use
  Company Number: US-TARO-2013P1005679

PATIENT
  Sex: 0

DRUGS (1)
  1. CARBAMAZEPINE TABLETS USP 200 MG [Suspect]

REACTIONS (1)
  - Coeliac disease [Not Recovered/Not Resolved]
